FAERS Safety Report 6840924-9 (Version None)
Quarter: 2010Q3

REPORT INFORMATION
  Report Type: 
  Country: None (occurrence: None)
  Receive Date: 20100714
  Receipt Date: 20070622
  Transmission Date: 20110219
  Serious: Yes (Other)
  Sender: FDA-Public Use
  Company Number: US-PFIZER INC-2007052945

PATIENT
  Sex: Male
  Weight: 75.9 kg

DRUGS (1)
  1. CHANTIX [Suspect]
     Indication: EX-TOBACCO USER
     Route: 048
     Dates: start: 20070606, end: 20070618

REACTIONS (3)
  - HEPATIC FUNCTION ABNORMAL [None]
  - MUSCULOSKELETAL PAIN [None]
  - PYREXIA [None]
